FAERS Safety Report 8450798-0 (Version None)
Quarter: 2012Q2

REPORT INFORMATION
  Report Type: 
  Country: None (occurrence: None)
  Receive Date: 20120620
  Receipt Date: 20120611
  Transmission Date: 20120825
  Serious: Yes (Hospitalization)
  Sender: FDA-Public Use
  Company Number: US-JNJFOC-20120605653

PATIENT
  Age: 66 Year
  Sex: Female
  Weight: 90.26 kg

DRUGS (23)
  1. XARELTO [Suspect]
     Indication: PROPHYLAXIS
     Route: 048
     Dates: start: 20120225, end: 20120229
  2. REGULAR INSULIN [Concomitant]
  3. METFORMIN HCL [Concomitant]
  4. MS CONTIN [Concomitant]
  5. ROCEPHIN [Concomitant]
  6. XARELTO [Suspect]
     Indication: KNEE ARTHROPLASTY
     Route: 048
     Dates: start: 20120225, end: 20120229
  7. MAGNESIUM HYDROXIDE TAB [Concomitant]
  8. GABAPENTIN [Concomitant]
  9. FERROUS SULFATE TAB [Concomitant]
  10. LISINOPRIL [Concomitant]
  11. AMBIEN [Concomitant]
  12. PRAVACHOL [Concomitant]
  13. VITAMIN D [Concomitant]
  14. FOLIC ACID [Concomitant]
  15. ACETAMINOPHEN [Concomitant]
  16. METOPROLOL SUCCINATE [Concomitant]
  17. LACTATED RINGER'S [Concomitant]
     Route: 042
  18. MORPHINE [Concomitant]
  19. TORADOL [Concomitant]
  20. ZOFRAN [Concomitant]
  21. COLACE [Concomitant]
  22. ZOLOFT [Concomitant]
  23. FLEET [Concomitant]

REACTIONS (2)
  - THROMBOSIS [None]
  - VENOUS THROMBOSIS LIMB [None]
